FAERS Safety Report 8618203-9 (Version None)
Quarter: 2012Q3

REPORT INFORMATION
  Report Type: 
  Country: None (occurrence: None)
  Receive Date: 20120824
  Receipt Date: 20111107
  Transmission Date: 20120928
  Serious: No
  Sender: FDA-Public Use
  Company Number: US-ASTRAZENECA-2011SE54897

PATIENT
  Age: 74 Year
  Sex: Female
  Weight: 53.5 kg

DRUGS (5)
  1. LOSARTAN POTASSIUM [Concomitant]
  2. VENTOLIN [Concomitant]
  3. SIMVASTATIN [Concomitant]
  4. SYMBICORT [Suspect]
     Indication: CHRONIC OBSTRUCTIVE PULMONARY DISEASE
     Dosage: 2 PUFFS TWICE A DAY
     Route: 055
  5. LEVOTHROID [Concomitant]

REACTIONS (4)
  - DYSPNOEA [None]
  - THROAT IRRITATION [None]
  - VOMITING [None]
  - INCORRECT DOSE ADMINISTERED BY DEVICE [None]
